FAERS Safety Report 5286486-1 (Version None)
Quarter: 2007Q2

REPORT INFORMATION
  Report Type: 
  Country: None (occurrence: None)
  Receive Date: 20070404
  Receipt Date: 20070330
  Transmission Date: 20071010
  Serious: No
  Sender: FDA-Public Use
  Company Number: 2006UW07779

PATIENT
  Age: 533 Month
  Sex: Female
  Weight: 98.2 kg

DRUGS (7)
  1. SEROQUEL [Suspect]
     Indication: SCHIZOPHRENIA
     Route: 048
     Dates: start: 20040601, end: 20060901
  2. SEROQUEL [Suspect]
     Indication: DEPRESSION
     Route: 048
     Dates: start: 20040601, end: 20060901
  3. GEODON [Concomitant]
     Dates: start: 20060101
  4. SOLIAN [Concomitant]
  5. STELAZINE [Concomitant]
     Dates: start: 20060101
  6. LEXAPRO [Concomitant]
     Dates: start: 20060101
  7. CRACK [Concomitant]
     Dates: start: 20000101

REACTIONS (2)
  - INJURY [None]
  - INSULIN-REQUIRING TYPE II DIABETES MELLITUS [None]
